FAERS Safety Report 14159349 (Version 3)
Quarter: 2024Q1

REPORT INFORMATION
  Report Type: Report from Study
  Country: US (occurrence: US)
  Receive Date: 20171106
  Receipt Date: 20240306
  Transmission Date: 20240410
  Serious: Yes (Hospitalization)
  Sender: FDA-Public Use
  Company Number: US-PUMA BIOTECHNOLOGY, LTD.-2017US013552

PATIENT

DRUGS (8)
  1. NERLYNX [Suspect]
     Active Substance: NERATINIB
     Indication: HER2 positive breast cancer
     Dosage: 240 MG, DAILY
     Route: 048
     Dates: start: 20171004, end: 20171103
  2. NERLYNX [Suspect]
     Active Substance: NERATINIB
     Dosage: 160 MG, DAILY
     Route: 048
     Dates: start: 20171107, end: 20171201
  3. NERLYNX [Suspect]
     Active Substance: NERATINIB
     Dosage: 80 MG, DAILY
     Route: 048
     Dates: start: 20171211, end: 201712
  4. NERLYNX [Suspect]
     Active Substance: NERATINIB
     Dosage: 120 MG (3 TABLETS), DAILY
     Route: 048
     Dates: start: 20180525
  5. BACLOFEN [Concomitant]
     Active Substance: BACLOFEN
     Indication: Muscle spasms
  6. GABAPENTIN [Concomitant]
     Active Substance: GABAPENTIN
     Indication: Neuropathy peripheral
     Dosage: 200 MG, TID
  7. IMODIUM [Concomitant]
     Active Substance: LOPERAMIDE HYDROCHLORIDE
     Indication: Prophylaxis against diarrhoea
     Dosage: UNK
     Dates: start: 201710
  8. KCL [Concomitant]
     Active Substance: POTASSIUM CHLORIDE
     Indication: Product used for unknown indication

REACTIONS (16)
  - Hypokalaemia [Recovered/Resolved]
  - Anaemia [Unknown]
  - Acute kidney injury [Recovered/Resolved]
  - Dehydration [Unknown]
  - Diarrhoea [Recovering/Resolving]
  - Abdominal pain upper [Not Recovered/Not Resolved]
  - Headache [Not Recovered/Not Resolved]
  - Acne [Not Recovered/Not Resolved]
  - Anxiety [Unknown]
  - Mood swings [Recovering/Resolving]
  - Illness [Unknown]
  - Fatigue [Not Recovered/Not Resolved]
  - Weight decreased [Not Recovered/Not Resolved]
  - Decreased appetite [Not Recovered/Not Resolved]
  - Rash [Not Recovered/Not Resolved]
  - Product dose omission issue [Unknown]

NARRATIVE: CASE EVENT DATE: 20171001
